FAERS Safety Report 9099100 (Version 2)
Quarter: 2013Q3

REPORT INFORMATION
  Report Type: Spontaneous
  Country: US (occurrence: US)
  Receive Date: 20130213
  Receipt Date: 20130724
  Transmission Date: 20140515
  Serious: Yes (Other)
  Sender: FDA-Public Use
  Company Number: US-009507513-1302USA004368

PATIENT
  Age: 21 Year
  Sex: Female
  Weight: 61.22 kg

DRUGS (3)
  1. NEXPLANON [Suspect]
     Indication: CONTRACEPTION
     Dosage: 1 DF, UNK
     Route: 059
     Dates: start: 20121004
  2. TOPAMAX [Concomitant]
  3. VISTARIL [Concomitant]

REACTIONS (3)
  - Abortion spontaneous [Not Recovered/Not Resolved]
  - Unintended pregnancy [Recovered/Resolved]
  - Vaginal haemorrhage [Not Recovered/Not Resolved]
